FAERS Safety Report 8107669-9 (Version None)
Quarter: 2012Q1

REPORT INFORMATION
  Report Type: 
  Country: None (occurrence: None)
  Receive Date: 20120202
  Receipt Date: 20120130
  Transmission Date: 20120608
  Serious: Yes (Death)
  Sender: FDA-Public Use
  Company Number: US-SANOFI-AVENTIS-2012SA006043

PATIENT
  Age: 77 Year
  Sex: Male

DRUGS (20)
  1. DOCETAXEL [Suspect]
     Route: 041
  2. ISOSORBIDE DINITRATE [Concomitant]
  3. DEXAMETHASONE ACETATE [Concomitant]
  4. GRANISETRON HYDROCHLORIDE [Concomitant]
  5. FISH OIL [Concomitant]
  6. ZOLEDRONIC ACID [Concomitant]
  7. NITROGLYCERIN [Concomitant]
  8. ALLOPURINOL [Concomitant]
  9. METOPROLOL SUCCINATE [Concomitant]
  10. RANITIDINE HCL [Concomitant]
  11. DIPHENHYDRAMINE HCL [Concomitant]
  12. MORPHINE SULFATE [Concomitant]
  13. LANSOPRAZOLE [Concomitant]
  14. TEMAZEPAM [Concomitant]
  15. PYRIDOXINE HYDROCHLORIDE [Concomitant]
  16. SENNOSIDE A+B [Concomitant]
  17. CELECOXIB [Concomitant]
  18. INVESTIGATIONAL DRUG [Suspect]
     Dosage: 3 DAYS ON, 4 DAYS OFF FOR 3 WEEK THEN OFF FOR 1 WEEK
     Route: 048
  19. VITAMINS NOS [Concomitant]
  20. CALCIUM [Concomitant]

REACTIONS (2)
  - DEMYELINATION [None]
  - NEUROPATHY PERIPHERAL [None]
